FAERS Safety Report 21846091 (Version 1)
Quarter: 2023Q1

REPORT INFORMATION
  Report Type: Report from Study
  Country: US (occurrence: US)
  Receive Date: 20230111
  Receipt Date: 20230111
  Transmission Date: 20230418
  Serious: No
  Sender: FDA-Public Use
  Company Number: US-ABBVIE-4229881

PATIENT
  Sex: Female

DRUGS (1)
  1. RINVOQ [Suspect]
     Active Substance: UPADACITINIB
     Indication: Rheumatoid arthritis
     Dosage: ONSET DATE OF THE EVENT FOR COVID AND MOBILITY ISSUES: 2022
     Route: 048
     Dates: start: 20220701

REACTIONS (2)
  - COVID-19 [Recovered/Resolved]
  - Mobility decreased [Recovering/Resolving]
